FAERS Safety Report 9671215 (Version 1)
Quarter: 2013Q4

REPORT INFORMATION
  Report Type: Spontaneous
  Country: US (occurrence: US)
  Receive Date: 20131106
  Receipt Date: 20131106
  Transmission Date: 20140711
  Serious: Yes (Other)
  Sender: FDA-Public Use
  Company Number: US-AMGEN-USASP2013076446

PATIENT
  Age: 59 Year
  Sex: Female
  Weight: 72.74 kg

DRUGS (22)
  1. NEULASTA [Suspect]
     Indication: WHITE BLOOD CELL COUNT DECREASED
     Dosage: 6 MG, UNK
     Route: 058
  2. CARBOPLATIN [Concomitant]
     Indication: UTERINE CANCER
     Dosage: UNK
     Dates: start: 20130820
  3. CARBOPLATIN [Concomitant]
     Indication: OVARIAN CANCER STAGE IV
  4. TAXOL [Concomitant]
     Indication: UTERINE CANCER
     Dosage: UNK
     Dates: start: 20130820
  5. TAXOL [Concomitant]
     Indication: OVARIAN CANCER STAGE IV
  6. ACIDOPHILUS [Concomitant]
     Dosage: 175 MG, UNK
  7. ACTOS [Concomitant]
     Dosage: 15 MG, UNK
  8. CALCIUM [Concomitant]
     Dosage: 500 MG, UNK
  9. CHROMIUM PICOLINATE [Concomitant]
     Dosage: 400 MCG, UNK
  10. CINNAMON                           /01647501/ [Concomitant]
     Dosage: 500 MG, UNK
  11. CLARITIN                           /00413701/ [Concomitant]
     Dosage: 10 MG, UNK
  12. CRANBERRY                          /01512301/ [Concomitant]
     Dosage: 500 MG, UNK
  13. FLONASE                            /00908302/ [Concomitant]
     Dosage: 50 MUG/ ACTUATION
  14. HYDROCODONE [Concomitant]
     Dosage: 5 MG, UNK
  15. ACETAMINOPHEN [Concomitant]
     Dosage: 500 MG, UNK
  16. HYZAAR [Concomitant]
     Dosage: 100 MG-25 MG
  17. LANTUS [Concomitant]
     Dosage: 100 UNIT/ML
     Route: 058
  18. MULTIVITAMINS, PLAIN [Concomitant]
     Dosage: UNK
     Route: 048
  19. NOVOLOG [Concomitant]
     Dosage: 100 UNIT/ML
     Route: 058
  20. ONDANSETRON [Concomitant]
     Dosage: 4 MG, UNK
     Route: 048
  21. VITAMIN C                          /00008001/ [Concomitant]
     Dosage: 500 MG, UNK
  22. ZOLOFT [Concomitant]
     Dosage: 50 MG, UNK

REACTIONS (11)
  - Depression [Unknown]
  - Upper respiratory tract infection [Recovered/Resolved]
  - Pain in extremity [Recovered/Resolved]
  - Swelling [Unknown]
  - Fatigue [Unknown]
  - Sinus disorder [Unknown]
  - Incisional drainage [Unknown]
  - Nausea [Unknown]
  - Rosacea [Unknown]
  - Back pain [Unknown]
  - Bone pain [Unknown]
